FAERS Safety Report 4827624-1 (Version None)
Quarter: 2005Q4

REPORT INFORMATION
  Report Type: 
  Country: None (occurrence: None)
  Receive Date: 20051114
  Receipt Date: 20050823
  Transmission Date: 20060501
  Serious: Yes (Death, Hospitalization, Other)
  Sender: FDA-Public Use
  Company Number: PHBS2005JP12418

PATIENT
  Age: 83 Year
  Sex: Female
  Weight: 43 kg

DRUGS (10)
  1. DIOVAN [Suspect]
     Indication: HYPERTENSION
     Dosage: 80 MG, QD
     Route: 048
     Dates: start: 20050715, end: 20050822
  2. OMEPRAL [Concomitant]
     Dosage: 20 MG, UNK
     Route: 048
     Dates: start: 20050616, end: 20050822
  3. ASPIRIN [Concomitant]
     Dosage: 100 MG, UNK
     Route: 048
     Dates: start: 20050621, end: 20050822
  4. SIGMART [Concomitant]
     Dosage: 15 MG, UNK
     Route: 048
     Dates: start: 20050621, end: 20050822
  5. TANADOPA [Concomitant]
     Dosage: 2 G, UNK
     Route: 048
     Dates: start: 20050624, end: 20050822
  6. ZYLORIC [Concomitant]
     Dosage: 100 MG, UNK
     Route: 048
     Dates: start: 20050805, end: 20050822
  7. LASIX [Concomitant]
     Dosage: 20 MG, UNK
     Route: 048
     Dates: start: 20050626, end: 20050822
  8. MAALOX FAST BLOCKER [Concomitant]
     Dosage: 10.8 G, UNK
     Route: 048
  9. LEBENIN [Concomitant]
     Dosage: 3 G, UNK
     Route: 048
     Dates: start: 20050717, end: 20050822
  10. ALDACTONE [Concomitant]
     Dosage: 25 MG, UNK
     Route: 048
     Dates: start: 20050626, end: 20050707

REACTIONS (18)
  - BLOOD PRESSURE DECREASED [None]
  - C-REACTIVE PROTEIN INCREASED [None]
  - CONVULSION [None]
  - DECREASED APPETITE [None]
  - DISSEMINATED INTRAVASCULAR COAGULATION [None]
  - DYSPNOEA [None]
  - GENERALISED OEDEMA [None]
  - HEART RATE DECREASED [None]
  - HYPERAMMONAEMIA [None]
  - HYPOPROTEINAEMIA [None]
  - INTERSTITIAL LUNG DISEASE [None]
  - MULTI-ORGAN FAILURE [None]
  - PLATELET COUNT DECREASED [None]
  - PULMONARY FIBROSIS [None]
  - PYREXIA [None]
  - RENAL FAILURE [None]
  - RESPIRATORY DISORDER [None]
  - URINE OUTPUT DECREASED [None]
